FAERS Safety Report 12092353 (Version 1)
Quarter: 2016Q1

REPORT INFORMATION
  Report Type: Spontaneous
  Country: US (occurrence: None)
  Receive Date: 20160217
  Receipt Date: 20160217
  Transmission Date: 20160526
  Serious: Yes (Other)
  Sender: FDA-Public Use
  Company Number: None

PATIENT
  Age: 57 Year
  Sex: Male
  Weight: 96.62 kg

DRUGS (2)
  1. CLOPIDOGREL BISULFATE 75 MG [Suspect]
     Active Substance: CLOPIDOGREL BISULFATE
     Indication: PERIPHERAL ARTERIAL OCCLUSIVE DISEASE
     Route: 048
     Dates: start: 20150808
  2. CLOPIDOGREL BISULFATE 75 MG [Suspect]
     Active Substance: CLOPIDOGREL BISULFATE
     Indication: INTERMITTENT CLAUDICATION
     Route: 048
     Dates: start: 20150808

REACTIONS (2)
  - Haemorrhage urinary tract [None]
  - Blood urine present [None]

NARRATIVE: CASE EVENT DATE: 20160205
